FAERS Safety Report 4280323-X (Version None)
Quarter: 2004Q1

REPORT INFORMATION
  Report Type: 
  Country: None (occurrence: None)
  Receive Date: 20040126
  Receipt Date: 20040115
  Transmission Date: 20041129
  Serious: Yes (Death)
  Sender: FDA-Public Use
  Company Number: USA-2003-0011254

PATIENT
  Age: 63 Year
  Sex: Male

DRUGS (5)
  1. OXYCONTIN [Suspect]
     Indication: PAIN
     Dosage: 40 MG, Q12H
     Dates: start: 20031001, end: 20031104
  2. COUMADIN [Concomitant]
  3. TENORMIN [Concomitant]
  4. LANOXIN [Concomitant]
  5. K-DUR 10 [Concomitant]

REACTIONS (2)
  - MALIGNANT NEOPLASM PROGRESSION [None]
  - OESOPHAGEAL CARCINOMA [None]
